FAERS Safety Report 4810394-0 (Version None)
Quarter: 2005Q4

REPORT INFORMATION
  Report Type: 
  Country: None (occurrence: None)
  Receive Date: 20051024
  Receipt Date: 20051006
  Transmission Date: 20060501
  Serious: Yes (Life-Threatening)
  Sender: FDA-Public Use
  Company Number: 12557

PATIENT
  Age: 67 Year
  Sex: Female
  Weight: 50 kg

DRUGS (10)
  1. DOXORUBICIN HCL [Suspect]
     Dosage: 40 MG PER_CYCLE, IV
     Route: 042
     Dates: start: 20050914
  2. VINCRISTINE [Suspect]
     Dosage: 2 MG PER_CYCLE, IV
     Route: 042
     Dates: start: 20050914
  3. CYCLOPHOSPHAMIDE [Suspect]
     Dosage: 200 MG PER_CYCLE, IV
     Route: 042
     Dates: start: 20050914
  4. RANITIDINE [Suspect]
     Dosage: 150 MG BID
  5. REPAGLINIDE [Concomitant]
  6. DIHYDROCODEINE [Concomitant]
  7. TRAMADOL [Concomitant]
  8. CEFTRIAXONE [Concomitant]
  9. CLARITHROMYCIN [Concomitant]
  10. PREDNISOLONE [Suspect]

REACTIONS (3)
  - ANAEMIA [None]
  - NEUTROPENIA [None]
  - THROMBOCYTOPENIA [None]
